FAERS Safety Report 5696112-5 (Version None)
Quarter: 2008Q2

REPORT INFORMATION
  Report Type: 
  Country: None (occurrence: None)
  Receive Date: 20080407
  Receipt Date: 20080328
  Transmission Date: 20081010
  Serious: Yes (Hospitalization)
  Sender: FDA-Public Use
  Company Number: US-ABBOTT-08P-163-0444199-00

PATIENT
  Sex: Male
  Weight: 90.9 kg

DRUGS (2)
  1. DEPAKOTE [Suspect]
     Indication: DEMENTIA ALZHEIMER'S TYPE
     Route: 048
     Dates: start: 20070601
  2. DEPAKOTE [Suspect]

REACTIONS (2)
  - DRUG LEVEL BELOW THERAPEUTIC [None]
  - PNEUMONIA [None]
